FAERS Safety Report 8424874-2 (Version None)
Quarter: 2012Q2

REPORT INFORMATION
  Report Type: 
  Country: None (occurrence: None)
  Receive Date: 20120611
  Receipt Date: 20120530
  Transmission Date: 20120825
  Serious: Yes (Hospitalization)
  Sender: FDA-Public Use
  Company Number: JP-BRISTOL-MYERS SQUIBB COMPANY-16660235

PATIENT
  Sex: Female

DRUGS (5)
  1. ERBITUX [Suspect]
     Indication: COLON CANCER
     Dosage: 6-6JAN10:500MG 300MG:1 IN 1WK 15JAN-12MAR10 5TH INF:5FEB10
     Route: 042
     Dates: start: 20100106
  2. DEXAMETHASONE SODIUM PHOSPHATE [Concomitant]
     Indication: PREMEDICATION
     Dosage: INCLUDING SKIPPED WEEK
     Route: 042
     Dates: start: 20100106, end: 20100312
  3. POLARAMINE [Concomitant]
     Indication: PREMEDICATION
     Dosage: INCLUDING SKIPPED WEEK
     Route: 042
     Dates: start: 20100106, end: 20100312
  4. IRINOTECAN HCL [Concomitant]
     Indication: COLON CANCER
     Dosage: 06JAN-22JAN10:120MG 12MAR-12MAR10:300MG
     Route: 042
     Dates: start: 20100106, end: 20100312
  5. GRANISETRON [Concomitant]
     Indication: ANTIEMETIC SUPPORTIVE CARE
     Route: 042
     Dates: start: 20100106, end: 20100312

REACTIONS (3)
  - IMPAIRED HEALING [None]
  - WOUND DEHISCENCE [None]
  - SKIN REACTION [None]
